FAERS Safety Report 11399710 (Version 2)
Quarter: 2015Q3

REPORT INFORMATION
  Report Type: Spontaneous
  Country: TR (occurrence: TR)
  Receive Date: 20150820
  Receipt Date: 20150820
  Transmission Date: 20151125
  Serious: Yes (Other)
  Sender: FDA-Public Use
  Company Number: PHHY2015TR099669

PATIENT
  Age: 38 Year
  Sex: Male

DRUGS (4)
  1. METHOTREXATE [Suspect]
     Active Substance: METHOTREXATE
     Indication: IMMUNOSUPPRESSION
  2. METHOTREXATE [Suspect]
     Active Substance: METHOTREXATE
     Indication: STEM CELL TRANSPLANT
     Route: 065
  3. CICLOSPORIN [Suspect]
     Active Substance: CYCLOSPORINE
     Indication: STEM CELL TRANSPLANT
     Route: 065
  4. CICLOSPORIN [Suspect]
     Active Substance: CYCLOSPORINE
     Indication: IMMUNOSUPPRESSION

REACTIONS (3)
  - Graft versus host disease in skin [Unknown]
  - Polycythaemia [Unknown]
  - Chronic graft versus host disease in liver [Unknown]
